FAERS Safety Report 18450110 (Version 5)
Quarter: 2021Q3

REPORT INFORMATION
  Report Type: Report from Study
  Country: JP (occurrence: JP)
  Receive Date: 20201102
  Receipt Date: 20210709
  Transmission Date: 20211014
  Serious: Yes (Hospitalization, Other)
  Sender: FDA-Public Use
  Company Number: JP-ALXN-A202015843

PATIENT
  Age: 73 Year
  Sex: Male
  Weight: 53 kg

DRUGS (19)
  1. ULTOMIRIS [Suspect]
     Active Substance: RAVULIZUMAB-CWVZ
     Indication: PAROXYSMAL NOCTURNAL HAEMOGLOBINURIA
     Dosage: 2400 MG, SINGLE
     Route: 042
     Dates: start: 20191101, end: 20191101
  2. CALORYL [Concomitant]
     Indication: HEPATIC ENCEPHALOPATHY
     Dosage: 16.05 G, QID
     Route: 048
     Dates: start: 20181112, end: 20200726
  3. NEXIUM [Concomitant]
     Active Substance: ESOMEPRAZOLE MAGNESIUM
     Dosage: 20 MG, QD
     Route: 048
     Dates: start: 20200806
  4. POLARAMINE [Concomitant]
     Active Substance: DEXCHLORPHENIRAMINE MALEATE
     Indication: PROPHYLAXIS
     Dosage: 5 MG, QD
     Route: 065
     Dates: start: 20200727, end: 20200727
  5. INDERAL [Concomitant]
     Active Substance: PROPRANOLOL HYDROCHLORIDE
     Indication: PROPHYLAXIS
     Dosage: 10 MG, TID
     Route: 048
     Dates: start: 20180130
  6. ZALUTIA [Concomitant]
     Active Substance: TADALAFIL
     Indication: BENIGN PROSTATIC HYPERPLASIA
     Dosage: 2.5 MG, QD
     Route: 048
  7. LANSOPRAZOLE. [Concomitant]
     Active Substance: LANSOPRAZOLE
     Indication: PROPHYLAXIS
     Dosage: 15 MG, QD
     Route: 048
     Dates: start: 20200727, end: 20200805
  8. MIYA?BM [Concomitant]
     Active Substance: CLOSTRIDIUM BUTYRICUM SPORES STRAIN M-55
     Dosage: 2 G, TID
     Route: 048
     Dates: start: 20200306
  9. ULTOMIRIS [Suspect]
     Active Substance: RAVULIZUMAB-CWVZ
     Dosage: 3000 MG, Q8W
     Route: 042
     Dates: start: 20191115
  10. CALORYL [Concomitant]
     Indication: PROPHYLAXIS
     Dosage: 16.05 G, TID
     Route: 048
     Dates: start: 20200727, end: 20200805
  11. LINZESS [Concomitant]
     Active Substance: LINACLOTIDE
     Indication: CONSTIPATION
     Dosage: 0.25 MG, QD
     Route: 048
     Dates: start: 20191004
  12. NEXIUM [Concomitant]
     Active Substance: ESOMEPRAZOLE MAGNESIUM
     Indication: PROPHYLAXIS
     Dosage: 20 MG, QD
     Route: 048
     Dates: start: 20160408, end: 20200726
  13. AMINOLEBAN EN [Concomitant]
     Active Substance: UNSPECIFIED INGREDIENT
     Indication: HEPATIC ENCEPHALOPATHY
     Dosage: 50 G, TID
     Route: 048
     Dates: start: 20170606
  14. MIYA?BM [Concomitant]
     Active Substance: CLOSTRIDIUM BUTYRICUM SPORES STRAIN M-55
     Indication: CONSTIPATION
     Dosage: 1 G, TID
     Route: 048
     Dates: start: 20170724, end: 20200305
  15. CEFOCEF                            /00883901/ [Concomitant]
     Active Substance: CEFOPERAZONE
     Indication: PROPHYLAXIS
     Dosage: 1 G, QD
     Route: 065
     Dates: start: 20200728, end: 20200728
  16. CEFOCEF                            /00883901/ [Concomitant]
     Active Substance: CEFOPERAZONE
     Dosage: 2 G, BID
     Route: 065
     Dates: start: 20200729, end: 20200802
  17. CALORYL [Concomitant]
     Dosage: 16.05 G, QID
     Route: 048
     Dates: start: 20200806
  18. LEVOFLOXACIN. [Concomitant]
     Active Substance: LEVOFLOXACIN
     Indication: PROPHYLAXIS
     Dosage: 250 MG, QD
     Route: 048
     Dates: start: 20200805, end: 20200811
  19. L CARTIN FF [Concomitant]
     Active Substance: LEVOCARNITINE
     Indication: HEPATIC ENCEPHALOPATHY
     Dosage: 10 ML, QD
     Route: 048
     Dates: start: 20180418

REACTIONS (7)
  - Dyslalia [Recovering/Resolving]
  - Somnolence [Recovering/Resolving]
  - Hepatocellular carcinoma [Not Recovered/Not Resolved]
  - Contusion [Recovered/Resolved]
  - Fall [Recovered/Resolved]
  - Skin abrasion [Recovering/Resolving]
  - Nail injury [Recovering/Resolving]

NARRATIVE: CASE EVENT DATE: 20200110
